FAERS Safety Report 24637120 (Version 2)
Quarter: 2025Q1

REPORT INFORMATION
  Report Type: Spontaneous
  Country: JP (occurrence: JP)
  Receive Date: 20241119
  Receipt Date: 20250121
  Transmission Date: 20250408
  Serious: Yes (Other)
  Sender: BOEHRINGER INGELHEIM
  Company Number: JP-NBI-2024-BI-063611

PATIENT
  Age: 80 Year
  Sex: Female

DRUGS (1)
  1. GILOTRIF [Suspect]
     Active Substance: AFATINIB
     Indication: Lung adenocarcinoma

REACTIONS (4)
  - Urosepsis [Recovered/Resolved]
  - Metastases to peritoneum [Unknown]
  - Renal hypertrophy [Unknown]
  - Pyelocaliectasis [Unknown]
